FAERS Safety Report 4436157-6 (Version None)
Quarter: 2004Q3

REPORT INFORMATION
  Report Type: 
  Country: None (occurrence: None)
  Receive Date: 20040826
  Receipt Date: 20040812
  Transmission Date: 20050211
  Serious: Yes (Death)
  Sender: FDA-Public Use
  Company Number: S04-NOR-03814-01

PATIENT
  Age: 73 Year
  Sex: Female
  Weight: 42 kg

DRUGS (1)
  1. CITALOPRAM HYDROBROMIDE [Suspect]

REACTIONS (9)
  - ATHEROSCLEROSIS [None]
  - BLOOD PH DECREASED [None]
  - DRUG TOXICITY [None]
  - HEART RATE INCREASED [None]
  - HEPATIC FAILURE [None]
  - HYPERPLASIA [None]
  - MULTI-ORGAN FAILURE [None]
  - OVERDOSE [None]
  - PCO2 INCREASED [None]
